FAERS Safety Report 17845545 (Version 1)
Quarter: 2020Q2

REPORT INFORMATION
  Report Type: Spontaneous
  Country: US (occurrence: US)
  Receive Date: 20200529
  Receipt Date: 20200529
  Transmission Date: 20200714
  Serious: No
  Sender: FDA-Public Use
  Company Number: None

PATIENT
  Age: 47 Year
  Sex: Male
  Weight: 54.5 kg

DRUGS (9)
  1. GLYCOPYRROLATE. [Suspect]
     Active Substance: GLYCOPYRROLATE
     Indication: SALIVARY HYPERSECRETION
     Route: 048
  2. BUDESONIDE NEB [Concomitant]
  3. MONTELUKAST [Concomitant]
     Active Substance: MONTELUKAST SODIUM
  4. BACLOFEN. [Concomitant]
     Active Substance: BACLOFEN
  5. ALBUTEROL NEB [Concomitant]
     Active Substance: ALBUTEROL
  6. DUONEB [Concomitant]
     Active Substance: ALBUTEROL SULFATE\IPRATROPIUM BROMIDE
  7. POLYETHYLENE GLYCOL [Concomitant]
     Active Substance: POLYETHYLENE GLYCOLS
  8. TIZANIDINE. [Concomitant]
     Active Substance: TIZANIDINE
  9. ESOMEPRAZOLE. [Concomitant]
     Active Substance: ESOMEPRAZOLE MAGNESIUM

REACTIONS (3)
  - Tachycardia [None]
  - Salivary hypersecretion [None]
  - Pneumonia aspiration [None]

NARRATIVE: CASE EVENT DATE: 20200309
